FAERS Safety Report 7068616-4 (Version None)
Quarter: 2010Q4

REPORT INFORMATION
  Report Type: 
  Country: None (occurrence: None)
  Receive Date: 20101028
  Receipt Date: 20101013
  Transmission Date: 20110411
  Serious: Yes (Other)
  Sender: FDA-Public Use
  Company Number: US-ROCHE-736647

PATIENT
  Sex: Female

DRUGS (5)
  1. ACTEMRA [Suspect]
     Indication: RHEUMATOID ARTHRITIS
     Dosage: FORM: INFUSION
     Route: 042
     Dates: start: 20100503
  2. ACTEMRA [Suspect]
     Route: 042
     Dates: start: 20100601
  3. ACTEMRA [Suspect]
     Route: 042
     Dates: start: 20100628
  4. ACTEMRA [Suspect]
     Route: 042
     Dates: start: 20100726, end: 20100726
  5. SAVELLA [Concomitant]
     Indication: FIBROMYALGIA
     Dates: start: 20100504, end: 20100719

REACTIONS (4)
  - EPIGASTRIC DISCOMFORT [None]
  - GASTROINTESTINAL SOUNDS ABNORMAL [None]
  - HYPERHIDROSIS [None]
  - NAUSEA [None]
